FAERS Safety Report 18809356 (Version 1)
Quarter: 2021Q1

REPORT INFORMATION
  Report Type: Spontaneous
  Country: US (occurrence: US)
  Receive Date: 20210129
  Receipt Date: 20210129
  Transmission Date: 20210419
  Serious: Yes (Other)
  Sender: FDA-Public Use
  Company Number: US-PURDUE-USA-2020-0201161

PATIENT

DRUGS (5)
  1. PERCOCET                           /00446701/ [Suspect]
     Active Substance: ACETAMINOPHEN\OXYCODONE HYDROCHLORIDE\OXYCODONE TEREPHTHALATE
     Indication: PAIN
     Dosage: UNK UNK, TID
     Route: 048
  2. SOMA [Suspect]
     Active Substance: CARISOPRODOL
     Indication: PAIN
     Dosage: UNK UNK, TID
     Route: 048
  3. KLONOPIN [Suspect]
     Active Substance: CLONAZEPAM
     Indication: PAIN
     Dosage: UNK
     Route: 048
  4. MORPHINE SULFATE (SIMILAR TO NDA 19?516) [Suspect]
     Active Substance: MORPHINE SULFATE
     Indication: PAIN
     Dosage: UNK UNK, TID
     Route: 048
  5. OXYCODONE HYDROCHLORIDE (SIMILAR TO NDA 22?272) [Suspect]
     Active Substance: OXYCODONE HYDROCHLORIDE
     Indication: PAIN
     Dosage: UNK
     Route: 048

REACTIONS (8)
  - Suicidal ideation [Unknown]
  - Overdose [Unknown]
  - Drug dependence [Unknown]
  - Anxiety [Unknown]
  - Pain [Unknown]
  - Product prescribing issue [Unknown]
  - Depressed mood [Unknown]
  - Withdrawal syndrome [Unknown]
